FAERS Safety Report 4453047-3 (Version None)
Quarter: 2004Q3

REPORT INFORMATION
  Report Type: 
  Country: None (occurrence: None)
  Receive Date: 20040916
  Receipt Date: 20040916
  Transmission Date: 20050211
  Serious: Yes (Death)
  Sender: FDA-Public Use
  Company Number: None

PATIENT
  Age: 72 Year
  Sex: Female
  Weight: 53.5244 kg

DRUGS (2)
  1. CISPLATIN [Suspect]
     Indication: LARYNGEAL CANCER
     Dosage: 150 MG IV X1
     Dates: start: 20040824
  2. RT [Concomitant]

REACTIONS (15)
  - BODY TEMPERATURE DECREASED [None]
  - BODY TEMPERATURE INCREASED [None]
  - CARDIAC ARREST [None]
  - COMA [None]
  - CYANOSIS [None]
  - DYSPNOEA [None]
  - FATIGUE [None]
  - HYPOTENSION [None]
  - HYPOXIA [None]
  - INCONTINENCE [None]
  - MULTI-ORGAN FAILURE [None]
  - PNEUMOTHORAX [None]
  - PUPIL FIXED [None]
  - RESPIRATORY DISTRESS [None]
  - SEPTIC SHOCK [None]
